FAERS Safety Report 11922569 (Version 1)
Quarter: 2016Q1

REPORT INFORMATION
  Report Type: Spontaneous
  Country: US (occurrence: US)
  Receive Date: 20160115
  Receipt Date: 20160115
  Transmission Date: 20160526
  Serious: No
  Sender: FDA-Public Use
  Company Number: US-ELI_LILLY_AND_COMPANY-US201512006257

PATIENT
  Sex: Male

DRUGS (2)
  1. LANTUS [Concomitant]
     Active Substance: INSULIN GLARGINE
     Dosage: 70 IU, QD
  2. HUMALOG [Suspect]
     Active Substance: INSULIN LISPRO
     Indication: DIABETES MELLITUS
     Dosage: 45 IU, TID
     Route: 065
     Dates: start: 1985

REACTIONS (4)
  - Vocal cord disorder [Unknown]
  - Blood glucose increased [Unknown]
  - Dysphonia [Unknown]
  - Hypoglycaemia [Unknown]
